FAERS Safety Report 8864852 (Version 1)
Quarter: 2012Q4

REPORT INFORMATION
  Report Type: 
  Country: US (occurrence: US)
  Receive Date: 20121024
  Receipt Date: 20121024
  Transmission Date: 20130627
  Serious: No
  Sender: FDA-Public Use
  Company Number: US-AMGEN-USASP2011069635

PATIENT
  Age: 55 Year
  Sex: Female

DRUGS (4)
  1. ENBREL [Suspect]
     Indication: RHEUMATOID ARTHRITIS
     Dosage: 50 mg, qwk
     Dates: start: 1999
  2. TREXALL [Concomitant]
     Dosage: 1 mg, qwk
     Dates: start: 201111
  3. HEPATITIS B VACCINE [Concomitant]
  4. RITUXAN [Concomitant]

REACTIONS (4)
  - Pain in extremity [Recovered/Resolved]
  - Arthralgia [Recovered/Resolved]
  - Restless legs syndrome [Not Recovered/Not Resolved]
  - Pruritus [Not Recovered/Not Resolved]
